FAERS Safety Report 8227908-3 (Version None)
Quarter: 2012Q1

REPORT INFORMATION
  Report Type: 
  Country: None (occurrence: None)
  Receive Date: 20120322
  Receipt Date: 20120301
  Transmission Date: 20120608
  Serious: Yes (Life-Threatening, Hospitalization)
  Sender: FDA-Public Use
  Company Number: US-ROCHE-1005438

PATIENT
  Sex: Male
  Weight: 59.1 kg

DRUGS (2)
  1. VEMURAFENIB [Suspect]
     Route: 048
     Dates: start: 20111025
  2. VEMURAFENIB [Suspect]
     Indication: METASTATIC MALIGNANT MELANOMA
     Dosage: LAST DOSE PRIOR TO SAE 30 AUG 2011
     Route: 048
     Dates: start: 20110811

REACTIONS (3)
  - PYREXIA [None]
  - NEUTROPENIA [None]
  - LEUKOPENIA [None]
